FAERS Safety Report 7018465-8 (Version None)
Quarter: 2010Q3

REPORT INFORMATION
  Report Type: 
  Country: None (occurrence: None)
  Receive Date: 20100928
  Receipt Date: 20100917
  Transmission Date: 20110219
  Serious: Yes (Life-Threatening)
  Sender: FDA-Public Use
  Company Number: FR-JNJFOC-20100906089

PATIENT
  Age: 68 Year
  Sex: Male

DRUGS (4)
  1. REMICADE [Suspect]
     Indication: PSORIASIS
     Dosage: 7 INFUSIONS
     Route: 042
  2. ENBREL [Suspect]
     Indication: PSORIASIS
     Dosage: 3 MONTHS
     Route: 058
  3. ENBREL [Suspect]
     Route: 058
  4. ENBREL [Suspect]
     Route: 058

REACTIONS (3)
  - DRUG INEFFECTIVE [None]
  - HEPATIC CIRRHOSIS [None]
  - HEPATIC NEOPLASM MALIGNANT [None]
